FAERS Safety Report 7469805-7 (Version None)
Quarter: 2011Q2

REPORT INFORMATION
  Report Type: 
  Country: None (occurrence: None)
  Receive Date: 20110510
  Receipt Date: 20110504
  Transmission Date: 20111010
  Serious: Yes (Life-Threatening, Hospitalization, Other)
  Sender: FDA-Public Use
  Company Number: US-US-EMD SERONO, INC.-7026617

PATIENT
  Sex: Female

DRUGS (5)
  1. REBIF [Suspect]
     Route: 058
     Dates: end: 20110101
  2. OXYCODONE [Concomitant]
     Indication: PAIN
  3. VALIUM [Concomitant]
  4. REBIF [Suspect]
     Indication: MULTIPLE SCLEROSIS
     Route: 058
     Dates: start: 20100210
  5. REBIF [Suspect]
     Route: 058
     Dates: start: 20110101

REACTIONS (19)
  - RESPIRATORY FAILURE [None]
  - COGNITIVE DISORDER [None]
  - WEIGHT DECREASED [None]
  - AMENORRHOEA [None]
  - LOSS OF CONSCIOUSNESS [None]
  - NEURALGIA [None]
  - DYSARTHRIA [None]
  - FEELING OF RELAXATION [None]
  - INAPPROPRIATE SCHEDULE OF DRUG ADMINISTRATION [None]
  - PAIN [None]
  - MULTIPLE SCLEROSIS RELAPSE [None]
  - ABDOMINAL DISCOMFORT [None]
  - VOMITING [None]
  - CARDIAC DISORDER [None]
  - MEMORY IMPAIRMENT [None]
  - BALANCE DISORDER [None]
  - DECREASED APPETITE [None]
  - THYROID DISORDER [None]
  - MUSCLE SPASMS [None]
